FAERS Safety Report 12463915 (Version 7)
Quarter: 2016Q4

REPORT INFORMATION
  Report Type: Report from Study
  Country: CN (occurrence: CN)
  Receive Date: 20160614
  Receipt Date: 20161123
  Transmission Date: 20170207
  Serious: Yes (Hospitalization)
  Sender: FDA-Public Use
  Company Number: CN-ROCHE-1770209

PATIENT
  Age: 48 Year
  Sex: Female
  Weight: 49 kg

DRUGS (18)
  1. CISPLATIN. [Suspect]
     Active Substance: CISPLATIN
     Indication: HER-2 POSITIVE GASTRIC CANCER
     Dosage: DATE OF MOST RECENT DOSE OF CISPLATIN PRIOR TO AE ONSET-15/JAN/2016.?DOSE OF LAST CISPLATIN ADMINIST
     Route: 042
     Dates: start: 20151001
  2. ADEMETIONINE 1,4-BUTANEDISULFONATE [Concomitant]
     Dosage: INDICATION: LIVER PROTECTION
     Route: 042
     Dates: start: 20160604, end: 20160613
  3. CAPECITABINE. [Suspect]
     Active Substance: CAPECITABINE
     Indication: HER-2 POSITIVE GASTRIC CANCER
     Dosage: DATE OF MOST RECENT DOSE OF CAPECITABINE PRIOR TO AE ONSET-30/MAY/2016?DOSE OF LAST CAPECITABINE ADM
     Route: 048
     Dates: start: 20151001
  4. CHLORPHENAMINE MALEATE [Concomitant]
     Active Substance: CHLORPHENIRAMINE MALEATE
     Indication: ANAPHYLACTIC REACTION
     Route: 048
     Dates: start: 20150921, end: 201509
  5. TRASTUZUMAB [Suspect]
     Active Substance: TRASTUZUMAB
     Dosage: MAINTENANCE DOSE?DOSE OF LAST TRASTUZUMAB ADMINISTERED- 294 MG
     Route: 042
  6. MAGNESIUM ISOGLYCYRRHIZINATE [Concomitant]
     Active Substance: MAGNESIUM ISOGLYCYRRHIZINATE
     Dosage: INDICATION: IMPROVE LIVER FUNCTION
     Route: 042
     Dates: start: 20160608, end: 20160613
  7. DEXAMETHASONE. [Concomitant]
     Active Substance: DEXAMETHASONE
     Route: 042
     Dates: start: 20160518, end: 20160518
  8. DIPHENHYDRAMINE. [Concomitant]
     Active Substance: DIPHENHYDRAMINE
     Route: 042
     Dates: start: 20160518, end: 20160518
  9. THYMOSIN [Concomitant]
     Active Substance: THYMOSIN
     Route: 042
     Dates: start: 20160604, end: 20160613
  10. ESTAZOLAM. [Concomitant]
     Active Substance: ESTAZOLAM
     Indication: INSOMNIA
     Dosage: PRN (AS NEEDED).
     Route: 048
     Dates: start: 20151008
  11. AMINO ACID [Concomitant]
     Active Substance: AMINO ACIDS
     Dosage: REPORTED AS COMPOUND AMINO ACID?INDICAITON: NUTRITION SUPPORT
     Route: 042
     Dates: start: 20160608, end: 20160613
  12. PANTOPRAZOLE SODIUM. [Concomitant]
     Active Substance: PANTOPRAZOLE SODIUM
     Route: 042
     Dates: start: 20160518, end: 20160518
  13. TRASTUZUMAB [Suspect]
     Active Substance: TRASTUZUMAB
     Indication: HER-2 POSITIVE GASTRIC CANCER
     Dosage: LOADING DOSE?DATE OF MOST RECENT DOSE OF TRASTUZUMAB PRIOR TO AE ONSET-18/MAY/2016
     Route: 042
     Dates: start: 20151001
  14. VITAMIN C [Concomitant]
     Active Substance: ASCORBIC ACID
     Dosage: INDICATION: NUTRITION SUPPORT
     Route: 042
     Dates: start: 20160608, end: 20160613
  15. VITAMIN B6 [Concomitant]
     Active Substance: PYRIDOXINE HYDROCHLORIDE
     Route: 042
     Dates: start: 20160608, end: 20160613
  16. PERTUZUMAB [Suspect]
     Active Substance: PERTUZUMAB
     Indication: HER-2 POSITIVE GASTRIC CANCER
     Dosage: DATE OF MOST RECENT DOSE OF PERTUZUMAB/PLACEBO PRIOR TO AE ONSET-18 MAY 2016
     Route: 042
     Dates: start: 20151001
  17. DIAMMONIUM GLYCYRRHIZINATE [Concomitant]
     Active Substance: HERBALS
     Route: 048
     Dates: start: 20150921, end: 201509
  18. GLUTATHIONE SODIUM [Concomitant]
     Active Substance: GLUTATHIONE
     Dosage: REPORTED AS REDUCED GLUTATHIONE SODIUM?INDICAITON: HEPATOPROTECTION
     Route: 042
     Dates: start: 20160604, end: 20160608

REACTIONS (1)
  - Pneumonia [Not Recovered/Not Resolved]

NARRATIVE: CASE EVENT DATE: 20160603
